FAERS Safety Report 9893084 (Version 2)
Quarter: 2014Q1

REPORT INFORMATION
  Report Type: Report from Study
  Country: US (occurrence: US)
  Receive Date: 20140213
  Receipt Date: 20140310
  Transmission Date: 20141002
  Serious: Yes (Hospitalization)
  Sender: FDA-Public Use
  Company Number: US-BRISTOL-MYERS SQUIBB COMPANY-20132478

PATIENT
  Age: 82 Year
  Sex: Male
  Weight: 73.3 kg

DRUGS (26)
  1. IPILIMUMAB [Suspect]
     Indication: MALIGNANT MELANOMA
     Dosage: 18-SEP-2013 742.7 MG?09-OCT-2013 734.1 MG?30-OCT-2013 735 NOS
     Route: 042
     Dates: start: 20130828
  2. VEMURAFENIB [Suspect]
     Indication: MALIGNANT MELANOMA
     Dosage: 1 DF=1920 NOS
     Route: 048
     Dates: start: 20130725, end: 20130809
  3. LIBRAX [Concomitant]
     Dosage: 1 DF= 1 CAPS?ONGOING
     Dates: start: 201112
  4. COLCHICINE [Concomitant]
     Dosage: ONGOING
     Dates: start: 2000
  5. PRADAXA [Concomitant]
     Dosage: ONGOING
     Dates: start: 2000
  6. CARDIZEM [Concomitant]
     Dosage: ONGOING
     Dates: start: 201101
  7. GLIMEPIRIDE [Concomitant]
     Dosage: ONGOING
     Dates: start: 201304
  8. SYNTHROID [Concomitant]
     Dosage: ONGOING
     Dates: start: 2009
  9. NADOLOL [Concomitant]
     Dates: start: 2011
  10. PROTONIX [Concomitant]
     Dosage: ONGOING
     Dates: start: 200903
  11. PROBENECID [Concomitant]
     Dosage: ONGOING
     Dates: start: 2000
  12. CRESTOR [Concomitant]
     Dates: start: 2009
  13. VITAMIN D [Concomitant]
     Dosage: ONGOING
     Dates: start: 201307
  14. ALPRAZOLAM [Concomitant]
     Dosage: ONGOING
     Dates: start: 20111227
  15. CORTISONE [Concomitant]
     Dosage: CREAM?ONGOING
     Dates: start: 20130808
  16. NORMAL SALINE [Concomitant]
     Dosage: 1%?ONGOING
     Dates: start: 20130808
  17. HYDROCORTISONE [Concomitant]
     Dosage: 1 DF=1 APPLICATION?ONGOING
     Dates: start: 20130810
  18. DECADRON [Concomitant]
     Dosage: ONGOING
     Dates: start: 20130812
  19. DEXAMETHASONE [Concomitant]
     Dosage: ONGOING
     Dates: start: 20131218
  20. LASIX [Concomitant]
     Route: 048
  21. HYDROCORTISONE [Concomitant]
     Route: 042
  22. HUMALOG [Concomitant]
     Dosage: 1 DF= 1UNIT
     Route: 058
  23. COSYNTROPIN [Concomitant]
     Route: 048
  24. PRILOSEC [Concomitant]
     Route: 048
  25. POTASSIUM CHLORIDE [Concomitant]
     Dosage: 1 DF=40 MEQ?20 MEQ
     Route: 048
  26. NORMAL SALINE [Concomitant]
     Route: 042

REACTIONS (1)
  - Syncope [Recovered/Resolved]
